FAERS Safety Report 6558162-6 (Version None)
Quarter: 2010Q1

REPORT INFORMATION
  Report Type: 
  Country: None (occurrence: None)
  Receive Date: 20100129
  Receipt Date: 20100125
  Transmission Date: 20100710
  Serious: Yes (Other)
  Sender: FDA-Public Use
  Company Number: B0626917A

PATIENT
  Sex: Female

DRUGS (1)
  1. DERMOVAL [Suspect]
     Dosage: .5PACK PER DAY
     Route: 061
     Dates: start: 20070901

REACTIONS (8)
  - ABDOMINAL DISTENSION [None]
  - BREAST SWELLING [None]
  - ERYTHEMA [None]
  - GENITAL SWELLING [None]
  - PRURITUS [None]
  - SKIN ATROPHY [None]
  - SKIN HYPERTROPHY [None]
  - SKIN STRIAE [None]
